FAERS Safety Report 7642183-6 (Version None)
Quarter: 2011Q3

REPORT INFORMATION
  Report Type: 
  Country: None (occurrence: None)
  Receive Date: 20110728
  Receipt Date: 20110725
  Transmission Date: 20111222
  Serious: Yes (Other)
  Sender: FDA-Public Use
  Company Number: CHPA2011US09884

PATIENT
  Age: 53 Year
  Sex: Female

DRUGS (5)
  1. NAVAN [Concomitant]
  2. WELLBUTRIN [Concomitant]
     Indication: SMOKING CESSATION THERAPY
  3. NICOTINE [Suspect]
     Indication: SMOKING CESSATION THERAPY
     Dosage: 21 MG, QD
     Route: 062
     Dates: start: 20110717, end: 20110724
  4. AMBIEN [Concomitant]
  5. ZOLOFT [Concomitant]

REACTIONS (7)
  - ANXIETY [None]
  - INSOMNIA [None]
  - SUICIDAL IDEATION [None]
  - CONDITION AGGRAVATED [None]
  - PRURITUS [None]
  - NAUSEA [None]
  - TIC [None]
